FAERS Safety Report 18731922 (Version 2)
Quarter: 2021Q1

REPORT INFORMATION
  Report Type: Spontaneous
  Country: US (occurrence: US)
  Receive Date: 20210112
  Receipt Date: 20210301
  Transmission Date: 20210419
  Serious: Yes (Life-Threatening, Hospitalization)
  Sender: FDA-Public Use
  Company Number: US-TEVA-2021-US-1867457

PATIENT
  Age: 60 Year
  Sex: Male

DRUGS (1)
  1. HYDRALAZINE [Suspect]
     Active Substance: HYDRALAZINE HYDROCHLORIDE
     Indication: PRODUCT USED FOR UNKNOWN INDICATION
     Route: 065

REACTIONS (4)
  - Pulmonary renal syndrome [Recovering/Resolving]
  - Acute kidney injury [Recovering/Resolving]
  - Anti-neutrophil cytoplasmic antibody positive vasculitis [Recovering/Resolving]
  - Lupus-like syndrome [Recovering/Resolving]
